FAERS Safety Report 9501640 (Version 2)
Quarter: 2014Q3

REPORT INFORMATION
  Report Type: Spontaneous
  Country: US (occurrence: US)
  Receive Date: 20130905
  Receipt Date: 20140703
  Transmission Date: 20150326
  Serious: Yes (Disabling, Other)
  Sender: FDA-Public Use
  Company Number: US-BAYER-2013-107182

PATIENT
  Age: 26 Year
  Sex: Female

DRUGS (1)
  1. MIRENA [Suspect]
     Active Substance: LEVONORGESTREL
     Dosage: UNK
     Dates: start: 2008, end: 20130705

REACTIONS (10)
  - Embedded device [None]
  - Abdominal pain [None]
  - Genital haemorrhage [None]
  - Injury [None]
  - Emotional distress [None]
  - Device difficult to use [None]
  - Anxiety [None]
  - Deformity [None]
  - Anhedonia [None]
  - General physical health deterioration [None]
